FAERS Safety Report 6547254-3 (Version None)
Quarter: 2010Q1

REPORT INFORMATION
  Report Type: 
  Country: None (occurrence: None)
  Receive Date: 20100122
  Receipt Date: 20090323
  Transmission Date: 20100710
  Serious: No
  Sender: FDA-Public Use
  Company Number: US-BAUSCH-2009BL001273

PATIENT
  Age: 55 Year
  Sex: Female

DRUGS (5)
  1. ZYLET [Suspect]
     Indication: EPISCLERITIS
     Route: 047
     Dates: start: 20090226, end: 20090314
  2. ZYLET [Suspect]
     Route: 047
     Dates: start: 20090315, end: 20090317
  3. ZYLET [Suspect]
     Route: 047
     Dates: start: 20090318, end: 20090319
  4. ZYLET [Suspect]
     Route: 047
     Dates: start: 20090320, end: 20090321
  5. SYNTHROID [Concomitant]

REACTIONS (3)
  - CUTIS LAXA [None]
  - INTRAOCULAR PRESSURE INCREASED [None]
  - MYOPIA [None]
